FAERS Safety Report 7867542-8 (Version None)
Quarter: 2011Q4

REPORT INFORMATION
  Report Type: 
  Country: None (occurrence: None)
  Receive Date: 20111028
  Receipt Date: 20111021
  Transmission Date: 20120403
  Serious: Yes (Hospitalization)
  Sender: FDA-Public Use
  Company Number: PHHO2011BE12422

PATIENT
  Sex: Male
  Weight: 43 kg

DRUGS (5)
  1. ZYPREXA [Concomitant]
  2. PROGRAF [Suspect]
     Indication: IMMUNOSUPPRESSION
     Dosage: 1 MG, UNK
     Dates: start: 20100912
  3. OMEPRAZOLE [Concomitant]
  4. MYCOPHENOLIC ACID [Suspect]
     Indication: RENAL TRANSPLANT
     Dosage: UNK
     Dates: start: 20100913, end: 20110719
  5. KEPPRA [Concomitant]

REACTIONS (8)
  - ACUTE PRERENAL FAILURE [None]
  - GENERAL PHYSICAL HEALTH DETERIORATION [None]
  - DISEASE PROGRESSION [None]
  - HYPOPHAGIA [None]
  - DIARRHOEA [None]
  - DRUG INEFFECTIVE [None]
  - DECREASED APPETITE [None]
  - WEIGHT DECREASED [None]
